FAERS Safety Report 8493529-0 (Version None)
Quarter: 2012Q3

REPORT INFORMATION
  Report Type: 
  Country: None (occurrence: None)
  Receive Date: 20120706
  Receipt Date: 20120703
  Transmission Date: 20120928
  Serious: Yes (Hospitalization, Other)
  Sender: FDA-Public Use
  Company Number: FR-GILEAD-2012-0057075

PATIENT
  Sex: Male

DRUGS (3)
  1. DEKRISTOL [Concomitant]
     Indication: VITAMIN D DEFICIENCY
     Dosage: UNK, QD
     Route: 048
     Dates: start: 20110801
  2. NOVALGIN                           /00169801/ [Concomitant]
     Indication: PAIN
     Dosage: UNK
     Route: 048
     Dates: start: 20110801, end: 20120501
  3. VIREAD [Suspect]
     Indication: HEPATITIS B
     Dosage: 245 MG, UNK
     Route: 048
     Dates: start: 20041001, end: 20120501

REACTIONS (2)
  - FEMORAL NECK FRACTURE [None]
  - RIB FRACTURE [None]
